FAERS Safety Report 6605092-7 (Version None)
Quarter: 2010Q1

REPORT INFORMATION
  Report Type: 
  Country: None (occurrence: None)
  Receive Date: 20100226
  Receipt Date: 20100218
  Transmission Date: 20100710
  Serious: Yes (Death)
  Sender: FDA-Public Use
  Company Number: GXKR2010DK02134

PATIENT
  Age: 58 Year
  Sex: Male

DRUGS (1)
  1. MIRTAZAPINE [Suspect]
     Dosage: 2 DF PER NIGHT
     Route: 048

REACTIONS (2)
  - ANTIPSYCHOTIC DRUG LEVEL ABOVE THERAPEUTIC [None]
  - SUDDEN DEATH [None]
